FAERS Safety Report 6244536-X (Version None)
Quarter: 2009Q2

REPORT INFORMATION
  Report Type: 
  Country: None (occurrence: None)
  Receive Date: 20090623
  Receipt Date: 20090623
  Transmission Date: 20091009
  Serious: No
  Sender: FDA-Public Use
  Company Number: None

PATIENT
  Age: 63 Year
  Sex: Male
  Weight: 92.9874 kg

DRUGS (1)
  1. ZICAM N/A ZICAM, MATRIX INC. [Suspect]
     Indication: NASOPHARYNGITIS
     Dosage: AS DIRECTED AS DIRECTED NASAL
     Route: 045
     Dates: start: 20090227, end: 20090301

REACTIONS (2)
  - ANOSMIA [None]
  - KNEE ARTHROPLASTY [None]
